FAERS Safety Report 6495680-3 (Version None)
Quarter: 2009Q4

REPORT INFORMATION
  Report Type: 
  Country: None (occurrence: None)
  Receive Date: 20091214
  Receipt Date: 20090730
  Transmission Date: 20100525
  Serious: No
  Sender: FDA-Public Use
  Company Number: US-BRISTOL-MYERS SQUIBB COMPANY-14723191

PATIENT
  Age: 53 Year
  Sex: Female
  Weight: 106 kg

DRUGS (13)
  1. ABILIFY [Suspect]
     Indication: MAJOR DEPRESSION
     Dosage: DISCONTINUED BETWEEN 2007 AND 2008
  2. ABILIFY [Suspect]
     Indication: POST-TRAUMATIC STRESS DISORDER
     Dosage: DISCONTINUED BETWEEN 2007 AND 2008
  3. FLUOXETINE [Concomitant]
  4. ATENOLOL [Concomitant]
  5. TRAZODONE HCL [Concomitant]
  6. FLONASE [Concomitant]
     Dosage: POSSIBLY
     Route: 045
  7. RISPERDAL [Concomitant]
  8. LORAZEPAM [Concomitant]
  9. MULTI-VITAMIN [Concomitant]
  10. CALCIUM CARBONATE [Concomitant]
  11. PSYLLIUM [Concomitant]
  12. LIOTHYRONINE SODIUM [Concomitant]
  13. GABAPENTIN [Concomitant]

REACTIONS (6)
  - DYSARTHRIA [None]
  - DYSPHAGIA [None]
  - DYSTONIA [None]
  - HYPERPROLACTINAEMIA [None]
  - TARDIVE DYSKINESIA [None]
  - WEIGHT INCREASED [None]
